FAERS Safety Report 25470665 (Version 2)
Quarter: 2025Q2

REPORT INFORMATION
  Report Type: Spontaneous
  Country: US (occurrence: US)
  Receive Date: 20250624
  Receipt Date: 20250626
  Transmission Date: 20250716
  Serious: Yes (Death, Other)
  Sender: Kenvue
  Company Number: US-KENVUE-20250607558

PATIENT
  Sex: Female

DRUGS (1)
  1. TYLENOL 8 HR ARTHRITIS PAIN [Suspect]
     Active Substance: ACETAMINOPHEN
     Indication: Arthritis
     Route: 065

REACTIONS (1)
  - Hepatic cirrhosis [Fatal]
